FAERS Safety Report 11538900 (Version 1)
Quarter: 2015Q3

REPORT INFORMATION
  Report Type: Spontaneous
  Country: US (occurrence: None)
  Receive Date: 20150922
  Receipt Date: 20150922
  Transmission Date: 20151125
  Serious: Yes (Hospitalization)
  Sender: FDA-Public Use
  Company Number: None

PATIENT
  Age: 42 Year
  Sex: Female
  Weight: 63.5 kg

DRUGS (1)
  1. CIPRO [Suspect]
     Active Substance: CIPROFLOXACIN HYDROCHLORIDE
     Indication: URINARY TRACT INFECTION
     Dates: start: 20150603, end: 20150910

REACTIONS (7)
  - Muscle tightness [None]
  - Vision blurred [None]
  - Joint stiffness [None]
  - Gastrointestinal disorder [None]
  - Neuropathy peripheral [None]
  - Pollakiuria [None]
  - Dehydration [None]

NARRATIVE: CASE EVENT DATE: 20150603
